FAERS Safety Report 5276531-1 (Version None)
Quarter: 2007Q1

REPORT INFORMATION
  Report Type: 
  Country: None (occurrence: None)
  Receive Date: 20061213
  Receipt Date: 20041213
  Transmission Date: 20070707
  Serious: Yes (Hospitalization)
  Sender: FDA-Public Use
  Company Number: 2004UW25312

PATIENT
  Age: 76 Year
  Sex: Male
  Weight: 77.11 kg

DRUGS (9)
  1. SEROQUEL [Suspect]
     Indication: SCHIZOPHRENIA
     Dosage: 200 MG PO
     Route: 048
  2. ZYPREXA [Concomitant]
  3. RISPERDAL [Concomitant]
  4. HALDOL [Concomitant]
  5. DILANTIN [Concomitant]
  6. COGENTIN [Concomitant]
  7. ARICEPT [Concomitant]
  8. ASPIRIN [Concomitant]
  9. NAMENDA [Concomitant]

REACTIONS (1)
  - HYPOTENSION [None]
